FAERS Safety Report 6051043-6 (Version None)
Quarter: 2009Q1

REPORT INFORMATION
  Report Type: 
  Country: None (occurrence: None)
  Receive Date: 20090126
  Receipt Date: 20080818
  Transmission Date: 20090719
  Serious: No
  Sender: FDA-Public Use
  Company Number: US-TYCO HEALTHCARE/MALLINCKRODT-T200801352

PATIENT

DRUGS (2)
  1. OPTIRAY 320 [Suspect]
     Indication: COMPUTERISED TOMOGRAM
     Dosage: 100 ML, SINGLE
     Route: 042
     Dates: start: 20080814, end: 20080814
  2. PREDNISONE TAB [Concomitant]
     Indication: PREMEDICATION
     Dosage: UNK, UNK
     Dates: start: 20080814, end: 20080814

REACTIONS (1)
  - HYPERSENSITIVITY [None]
